FAERS Safety Report 13466600 (Version 1)
Quarter: 2017Q2

REPORT INFORMATION
  Report Type: Spontaneous
  Country: US (occurrence: US)
  Receive Date: 20170420
  Receipt Date: 20170420
  Transmission Date: 20170830
  Serious: No
  Sender: FDA-Public Use
  Company Number: None

PATIENT
  Age: 39 Year
  Sex: Female

DRUGS (1)
  1. SUTENT [Suspect]
     Active Substance: SUNITINIB MALATE
     Indication: BENIGN PANCREATIC NEOPLASM
     Route: 048
     Dates: start: 20161101

REACTIONS (3)
  - Muscle spasms [None]
  - Dry skin [None]
  - Premature ageing [None]

NARRATIVE: CASE EVENT DATE: 20170328
